FAERS Safety Report 6221563-X (Version None)
Quarter: 2009Q2

REPORT INFORMATION
  Report Type: 
  Country: None (occurrence: None)
  Receive Date: 20090610
  Receipt Date: 20090603
  Transmission Date: 20091009
  Serious: No
  Sender: FDA-Public Use
  Company Number: US-B.I. PHARMACEUTICALS,INC./RIDGEFIELD-2009-BP-06018BP

PATIENT
  Age: 59 Year
  Sex: Male

DRUGS (6)
  1. SPIRIVA [Suspect]
     Indication: ASTHMA
     Dosage: 18MCG
     Route: 055
     Dates: start: 20070101
  2. ALBUTEROL [Suspect]
     Dates: start: 19890101
  3. ADVAIR HFA [Suspect]
     Indication: ASTHMA
     Dates: start: 20050101
  4. NEXIUM [Concomitant]
  5. IPRATROPIUM BROMIDE [Concomitant]
  6. ZYRTEC [Concomitant]

REACTIONS (1)
  - CANDIDIASIS [None]
